FAERS Safety Report 13801627 (Version 2)
Quarter: 2017Q3

REPORT INFORMATION
  Report Type: Spontaneous
  Country: ZA (occurrence: ZA)
  Receive Date: 20170727
  Receipt Date: 20170802
  Transmission Date: 20171127
  Serious: Yes (Hospitalization, Other)
  Sender: FDA-Public Use
  Company Number: ZA-FRESENIUS KABI-FK201706314

PATIENT
  Sex: Female
  Weight: 90 kg

DRUGS (10)
  1. DEXTROSE 20% (MANUFACTURER UNKNOWN) [Suspect]
     Active Substance: DEXTROSE
     Indication: PARENTERAL NUTRITION
     Route: 042
     Dates: start: 20170723, end: 20170724
  2. ADDAMEL N [Suspect]
     Active Substance: CHROMIC CHLORIDE\CUPROUS CHLORIDE\FERRIC CHLORIDE\MANGANESE CHLORIDE\POTASSIUM IODIDE\SODIUM FLUORIDE\SODIUM MOLYBDATE DIHYDRATE\SODIUM SELENITE\ZINC CHLORIDE
     Indication: PARENTERAL NUTRITION
     Route: 042
     Dates: start: 20170723, end: 20170724
  3. VITALIPID ADULT [Suspect]
     Active Substance: ERGOCALCIFEROL\PHYTONADIONE\RETINOL\TOCOPHEROL
     Indication: PARENTERAL NUTRITION
     Route: 042
     Dates: start: 20170723, end: 20170724
  4. SMOFLIPID [Suspect]
     Active Substance: FISH OIL\MEDIUM-CHAIN TRIGLYCERIDES\OLIVE OIL\SOYBEAN OIL
     Indication: PARENTERAL NUTRITION
     Route: 042
     Dates: start: 20170723, end: 20170724
  5. POTASSIUM PHOSPHATE INJECTION, USP [Suspect]
     Active Substance: POTASSIUM PHOSPHATE
     Indication: PARENTERAL NUTRITION
     Route: 042
     Dates: start: 20170723, end: 20170724
  6. SOLUVIT N [Suspect]
     Active Substance: VITAMINS
     Indication: PARENTERAL NUTRITION
     Route: 042
     Dates: start: 20170723, end: 20170724
  7. SODIUM CHLORIDE 5% [Suspect]
     Active Substance: SODIUM CHLORIDE
     Indication: PARENTERAL NUTRITION
     Route: 042
     Dates: start: 20170723, end: 20170724
  8. POTASSIUM CHLORIDE 150 MG / ML [Suspect]
     Active Substance: POTASSIUM CHLORIDE
     Indication: PARENTERAL NUTRITION
     Route: 042
     Dates: start: 20170723, end: 20170724
  9. GLAMIN [Suspect]
     Active Substance: AMINO ACIDS
     Indication: PARENTERAL NUTRITION
     Route: 042
     Dates: start: 20170723, end: 20170724
  10. DIPEPTIVEN [Suspect]
     Active Substance: GLUTAMINE
     Indication: PARENTERAL NUTRITION
     Route: 042
     Dates: start: 20170723, end: 20170724

REACTIONS (1)
  - Hyponatraemia [Recovering/Resolving]

NARRATIVE: CASE EVENT DATE: 20170723
